FAERS Safety Report 13226005 (Version 1)
Quarter: 2017Q1

REPORT INFORMATION
  Report Type: Spontaneous
  Country: US (occurrence: US)
  Receive Date: 20170211
  Receipt Date: 20170211
  Transmission Date: 20170428
  Serious: Yes (Disabling)
  Sender: FDA-Public Use
  Company Number: None

PATIENT
  Age: 46 Year
  Sex: Female
  Weight: 51.75 kg

DRUGS (7)
  1. WELLBUTRIN [Concomitant]
     Active Substance: BUPROPION HYDROCHLORIDE
  2. ODANSETRON [Concomitant]
     Active Substance: ONDANSETRON
  3. BUPROPRION [Suspect]
     Active Substance: BUPROPION
     Indication: PAIN
     Dosage: ?          QUANTITY:1 TABLET(S);?
     Route: 048
  4. BUPROPRION [Suspect]
     Active Substance: BUPROPION
     Indication: MIGRAINE
     Dosage: ?          QUANTITY:1 TABLET(S);?
     Route: 048
  5. TRAMADOL. [Concomitant]
     Active Substance: TRAMADOL
  6. IBUPROFEN. [Concomitant]
     Active Substance: IBUPROFEN
  7. RIZATRIPTAN. [Concomitant]
     Active Substance: RIZATRIPTAN

REACTIONS (2)
  - Shock symptom [None]
  - Product substitution issue [None]

NARRATIVE: CASE EVENT DATE: 20160101
